FAERS Safety Report 9499040 (Version 1)
Quarter: 2013Q3

REPORT INFORMATION
  Report Type: Report from Study
  Country: US (occurrence: US)
  Receive Date: 20130904
  Receipt Date: 20130904
  Transmission Date: 20140515
  Serious: Yes (Other)
  Sender: FDA-Public Use
  Company Number: US-PFIZER INC-2013249584

PATIENT
  Sex: Female

DRUGS (5)
  1. PACLITAXEL [Suspect]
     Indication: OVARIAN CANCER
     Dosage: 80 MG/M2, CYCLIC VIA 1-HOUR INFUSION
  2. VORINOSTAT [Suspect]
     Indication: OVARIAN CANCER
     Dosage: 200 MG, CYCLIC (EVERY 28 DAYS)
  3. CARBOPLATIN [Concomitant]
     Indication: OVARIAN CANCER
     Dosage: 6 TIMES AREA UNDER THE CURVE ACCORDING TO THE CALVERT FORMULA OVER 30 MINUTES ON DAY 1
  4. DEXAMETHASONE [Concomitant]
     Indication: PREMEDICATION
     Dosage: UNK
     Route: 042
  5. DIPHENHYDRAMINE [Concomitant]
     Indication: PREMEDICATION
     Dosage: UNK
     Route: 042

REACTIONS (2)
  - Anastomotic leak [Recovered/Resolved]
  - Abdominal abscess [Recovered/Resolved]
